FAERS Safety Report 6839224-2 (Version None)
Quarter: 2010Q3

REPORT INFORMATION
  Report Type: 
  Country: None (occurrence: None)
  Receive Date: 20100714
  Receipt Date: 20100702
  Transmission Date: 20110219
  Serious: No
  Sender: FDA-Public Use
  Company Number: US-JNJFOC-20100702363

PATIENT
  Sex: Male
  Weight: 77.11 kg

DRUGS (5)
  1. FENTANYL [Suspect]
     Indication: PAIN
     Dosage: 50 UG/HR
     Route: 062
  2. FENTANYL [Suspect]
     Dosage: 100 UG/HR
     Route: 062
  3. FENTANYL [Suspect]
     Dosage: 100 UG/HR AND 50 UG/HR
     Route: 062
  4. FENTANYL [Suspect]
     Route: 062
  5. BENAZEPRIL HYDROCHLORIDE [Concomitant]
     Indication: HYPERTENSION
     Route: 048

REACTIONS (2)
  - DRUG EFFECT DECREASED [None]
  - WRONG TECHNIQUE IN DRUG USAGE PROCESS [None]
